FAERS Safety Report 7494488-X (Version None)
Quarter: 2011Q2

REPORT INFORMATION
  Report Type: 
  Country: None (occurrence: None)
  Receive Date: 20110520
  Receipt Date: 20110516
  Transmission Date: 20111010
  Serious: Yes (Hospitalization, Congenital Anomaly, Other)
  Sender: FDA-Public Use
  Company Number: US-PFIZER INC-2011105418

PATIENT
  Sex: Male
  Weight: 3.5 kg

DRUGS (4)
  1. EFFEXOR XR [Suspect]
     Dosage: 150 MG, 1X/DAY
     Route: 064
     Dates: start: 20070508
  2. TRAZODONE [Concomitant]
     Dosage: 25 MG, UNK
  3. XANAX [Concomitant]
     Dosage: 0.25 MG, 2X/DAY
     Dates: start: 20070508
  4. RISPERDAL [Concomitant]
     Dosage: 0.25 MG, UNK

REACTIONS (18)
  - RESPIRATORY DISTRESS [None]
  - PATENT DUCTUS ARTERIOSUS [None]
  - DRUG EXPOSURE DURING PREGNANCY [None]
  - PNEUMOTHORAX [None]
  - PULMONARY VALVE INCOMPETENCE [None]
  - TORTICOLLIS [None]
  - PERICARDIAL EFFUSION [None]
  - SNORING [None]
  - COUGH [None]
  - ATRIAL SEPTAL DEFECT [None]
  - AORTIC VALVE INCOMPETENCE [None]
  - HYPOTONIA [None]
  - MATERNAL DRUGS AFFECTING FOETUS [None]
  - SEPSIS [None]
  - PULMONARY ARTERY STENOSIS [None]
  - HEART DISEASE CONGENITAL [None]
  - TRANSPOSITION OF THE GREAT VESSELS [None]
  - PULMONARY HYPERTENSION [None]
